FAERS Safety Report 6704368-2 (Version None)
Quarter: 2010Q2

REPORT INFORMATION
  Report Type: 
  Country: None (occurrence: None)
  Receive Date: 20100430
  Receipt Date: 20100423
  Transmission Date: 20101027
  Serious: Yes (Hospitalization)
  Sender: FDA-Public Use
  Company Number: JP-MERCK-1004USA04388

PATIENT
  Age: 81 Year
  Sex: Female

DRUGS (6)
  1. JANUVIA [Suspect]
     Route: 048
     Dates: start: 20100226, end: 20100304
  2. MUCOSTA [Concomitant]
     Route: 048
  3. VOLTAREN [Concomitant]
     Route: 065
  4. RIMATIL [Concomitant]
     Route: 048
  5. RIZE [Concomitant]
     Route: 048
  6. INSULIN [Concomitant]
     Route: 065
     Dates: end: 20100225

REACTIONS (1)
  - HYPOGLYCAEMIA [None]
